FAERS Safety Report 6091903-3 (Version None)
Quarter: 2009Q1

REPORT INFORMATION
  Report Type: 
  Country: None (occurrence: None)
  Receive Date: 20090225
  Receipt Date: 20081022
  Transmission Date: 20090719
  Serious: No
  Sender: FDA-Public Use
  Company Number: A0748705A

PATIENT
  Age: 62 Year
  Sex: Female

DRUGS (4)
  1. VALTREX [Suspect]
     Indication: GENITAL HERPES
     Dosage: 1000MG PER DAY
     Route: 048
  2. GLUCOSAMINE [Concomitant]
  3. VITAMINS [Concomitant]
  4. CALCIUM [Concomitant]

REACTIONS (3)
  - DRUG INEFFECTIVE [None]
  - GENITAL HERPES [None]
  - PRODUCT QUALITY ISSUE [None]
